FAERS Safety Report 5213321-X (Version None)
Quarter: 2007Q1

REPORT INFORMATION
  Report Type: 
  Country: None (occurrence: None)
  Receive Date: 20070119
  Receipt Date: 20060224
  Transmission Date: 20070707
  Serious: No
  Sender: FDA-Public Use
  Company Number: US-GLAXOSMITHKLINE-A0595142A

PATIENT
  Age: 76 Year
  Sex: Female

DRUGS (1)
  1. ARIXTRA [Suspect]
     Dosage: 2.5MG SINGLE DOSE
     Route: 058
     Dates: start: 20060201, end: 20060201

REACTIONS (2)
  - SWOLLEN TONGUE [None]
  - URTICARIA [None]
